FAERS Safety Report 9587496 (Version 3)
Quarter: 2013Q4

REPORT INFORMATION
  Report Type: Spontaneous
  Country: US (occurrence: US)
  Receive Date: 20131003
  Receipt Date: 20131029
  Transmission Date: 20140711
  Serious: No
  Sender: FDA-Public Use
  Company Number: US-009507513-1309USA011833

PATIENT
  Sex: Male
  Weight: 85 kg

DRUGS (4)
  1. VICTRELIS [Suspect]
     Indication: HEPATITIS C
     Dosage: 800 MG OF 80, TID / 200 MG CAPSULES-FOUR CAPSULES, 3 TIMES DAILY
     Route: 048
     Dates: start: 20130811
  2. VICTRELIS [Suspect]
     Dosage: 800 MG OF 80, TID / 200 MG CAPSULES-FOUR CAPSULES, 3 TIMES DAILY
     Route: 048
  3. REBETOL [Suspect]
     Indication: HEPATITIS C
     Dosage: UNKNOWN
     Route: 048
  4. PEGASYS [Suspect]
     Dosage: UNKNOWN

REACTIONS (3)
  - Poor quality drug administered [Unknown]
  - Product quality issue [Unknown]
  - No adverse event [Unknown]
